FAERS Safety Report 6999627-2 (Version None)
Quarter: 2010Q3

REPORT INFORMATION
  Report Type: 
  Country: None (occurrence: None)
  Receive Date: 20100920
  Receipt Date: 20091016
  Transmission Date: 20110219
  Serious: No
  Sender: FDA-Public Use
  Company Number: US-ASTRAZENECA-2009SE16361

PATIENT
  Age: 30 Year
  Sex: Male
  Weight: 90.7 kg

DRUGS (5)
  1. SEROQUEL XR [Suspect]
     Indication: BIPOLAR DISORDER
     Route: 048
     Dates: start: 20090920
  2. SEROQUEL XR [Suspect]
     Indication: DEPRESSION
     Route: 048
     Dates: start: 20090920
  3. SEROQUEL XR [Suspect]
     Route: 048
     Dates: end: 20091014
  4. SEROQUEL XR [Suspect]
     Route: 048
     Dates: end: 20091014
  5. DEPAKOTE [Concomitant]
     Route: 048

REACTIONS (7)
  - AGITATION [None]
  - ARTHRALGIA [None]
  - BONE PAIN [None]
  - DEPRESSION [None]
  - DIZZINESS [None]
  - INFLUENZA LIKE ILLNESS [None]
  - PAIN [None]
